FAERS Safety Report 9439977 (Version 3)
Quarter: 2013Q3

REPORT INFORMATION
  Report Type: Spontaneous
  Country: TR (occurrence: TR)
  Receive Date: 20130805
  Receipt Date: 20130920
  Transmission Date: 20140515
  Serious: Yes (Death, Other)
  Sender: FDA-Public Use
  Company Number: TR-AMGEN-TURSP2013053908

PATIENT
  Age: 35 Year
  Sex: Male
  Weight: 60 kg

DRUGS (1)
  1. MIMPARA [Suspect]
     Indication: HYPERPARATHYROIDISM SECONDARY
     Dosage: 30 UNK, QD
     Route: 048
     Dates: start: 20130701

REACTIONS (2)
  - Myocardial infarction [Fatal]
  - Diabetic neuropathy [Recovered/Resolved]
